FAERS Safety Report 11211004 (Version 2)
Quarter: 2015Q3

REPORT INFORMATION
  Report Type: Spontaneous
  Country: ES (occurrence: ES)
  Receive Date: 20150623
  Receipt Date: 20150721
  Transmission Date: 20151125
  Serious: Yes (Other)
  Sender: FDA-Public Use
  Company Number: ES-AMGEN-ESPSP2015060903

PATIENT
  Age: 52 Year
  Sex: Male

DRUGS (5)
  1. ENBREL [Suspect]
     Active Substance: ETANERCEPT
     Indication: PSORIASIS
     Dosage: 50 MG, TWICE WEEKLY
     Route: 058
     Dates: start: 20150602
  2. ENBREL [Suspect]
     Active Substance: ETANERCEPT
     Dosage: 50 MG, 2X/WEEK
     Route: 058
  3. HEPATITIS B VACCINE [Concomitant]
     Active Substance: HEPATITIS B VIRUS VACCINE
     Dosage: UNK
  4. DAIVOBET [Concomitant]
     Active Substance: BETAMETHASONE DIPROPIONATE\CALCIPOTRIENE
     Indication: PSORIASIS
     Dosage: 1 DF (1 APPLICATION DAILY OR EVERY 2 DAYS)
  5. CEMIDON [Concomitant]
     Active Substance: ISONIAZID
     Indication: ANTIBIOTIC PROPHYLAXIS
     Dosage: 1 DF, (1 TABLET OF AN UNKNOWN DOSE) ONCE DAILY

REACTIONS (2)
  - Wrist fracture [Recovering/Resolving]
  - Injection site erythema [Recovered/Resolved]

NARRATIVE: CASE EVENT DATE: 201506
